FAERS Safety Report 12629642 (Version 2)
Quarter: 2016Q4

REPORT INFORMATION
  Report Type: Spontaneous
  Country: US (occurrence: US)
  Receive Date: 20160808
  Receipt Date: 20161024
  Transmission Date: 20170207
  Serious: Yes (Hospitalization, Other)
  Sender: FDA-Public Use
  Company Number: US-GLAXOSMITHKLINE-US2016GSK112741

PATIENT
  Age: 60 Year
  Sex: Female

DRUGS (1)
  1. ADVAIR HFA [Suspect]
     Active Substance: FLUTICASONE PROPIONATE\SALMETEROL XINAFOATE
     Indication: SARCOIDOSIS
     Dosage: UNK
     Dates: start: 200611

REACTIONS (4)
  - Hysterectomy [Unknown]
  - Off label use [Unknown]
  - Product use issue [Unknown]
  - Hernia repair [Unknown]

NARRATIVE: CASE EVENT DATE: 20160404
